FAERS Safety Report 19415567 (Version 2)
Quarter: 2022Q2

REPORT INFORMATION
  Report Type: Spontaneous
  Country: GB (occurrence: GB)
  Receive Date: 20210614
  Receipt Date: 20220531
  Transmission Date: 20220721
  Serious: Yes (Hospitalization)
  Sender: FDA-Public Use
  Company Number: GB-MYLANLABS-2021M1034510

PATIENT
  Age: 5 Decade
  Sex: Male

DRUGS (5)
  1. CLARITHROMYCIN [Interacting]
     Active Substance: CLARITHROMYCIN
     Indication: Pneumonia
     Dosage: 500 MILLIGRAM, BID
     Route: 048
  2. METHADONE [Interacting]
     Active Substance: METHADONE HYDROCHLORIDE
     Indication: Drug dependence
     Dosage: 60 MILLIGRAM, QD
     Route: 065
  3. AMOXICILLIN [Concomitant]
     Active Substance: AMOXICILLIN
     Indication: Pneumonia
     Dosage: 500 MILLIGRAM, Q8H
     Route: 048
  4. AROVI [Concomitant]
     Indication: Product used for unknown indication
     Dosage: 130 MILLIGRAM, QD
     Route: 058
  5. NICOTINE [Concomitant]
     Active Substance: NICOTINE
     Indication: Drug therapy
     Dosage: UNK

REACTIONS (6)
  - Drug interaction [Recovered/Resolved]
  - Toxicity to various agents [Recovered/Resolved]
  - Depressed level of consciousness [Recovering/Resolving]
  - Respiratory failure [Recovered/Resolved]
  - Miosis [Recovered/Resolved]
  - Electrocardiogram QT prolonged [Recovered/Resolved]
